FAERS Safety Report 5586153-0 (Version None)
Quarter: 2008Q1

REPORT INFORMATION
  Report Type: 
  Country: None (occurrence: None)
  Receive Date: 20080104
  Receipt Date: 20080102
  Transmission Date: 20080703
  Serious: Yes (Hospitalization)
  Sender: FDA-Public Use
  Company Number: 2008SP000034

PATIENT
  Age: 17 Month
  Sex: Female

DRUGS (1)
  1. BETAMETHASONE [Suspect]
     Indication: EAR PAIN
     Dosage: 120 GTT; ONCE; PO
     Route: 048
     Dates: start: 20071202, end: 20071202

REACTIONS (5)
  - CONFUSIONAL STATE [None]
  - EAR INFECTION [None]
  - MALAISE [None]
  - PAIN [None]
  - PYREXIA [None]
